FAERS Safety Report 4716270-6 (Version None)
Quarter: 2005Q2

REPORT INFORMATION
  Report Type: 
  Country: None (occurrence: None)
  Receive Date: 20050630
  Receipt Date: 20050418
  Transmission Date: 20051028
  Serious: Yes (Hospitalization)
  Sender: FDA-Public Use
  Company Number: US_010260508

PATIENT
  Age: 69 Year
  Sex: Female
  Weight: 61 kg

DRUGS (7)
  1. HUMULIN-HUMAN NPH INSULIN (RDNA) (HUMAN INSULIN (RD [Suspect]
     Indication: DIABETES MELLITUS
     Dosage: 20 U/2 DAY
     Dates: start: 19890101
  2. HUMULIN R [Suspect]
     Indication: DIABETES MELLITUS
     Dosage: 4 U/2 DAY
     Dates: start: 19890101
  3. HUMALOG [Suspect]
     Indication: DIABETES MELLITUS
     Dates: start: 20030101
  4. SYNTHROID [Concomitant]
  5. LANTUS [Concomitant]
  6. PNEUMOVAX 23 [Concomitant]
  7. INFLUENZA VACCINE [Concomitant]

REACTIONS (6)
  - ARTHRITIS [None]
  - BLOOD GLUCOSE INCREASED [None]
  - HYPERGLYCAEMIA [None]
  - HYPOAESTHESIA [None]
  - HYPOGLYCAEMIA [None]
  - NAUSEA [None]
